FAERS Safety Report 5527240-2 (Version None)
Quarter: 2007Q4

REPORT INFORMATION
  Report Type: 
  Country: None (occurrence: None)
  Receive Date: 20071121
  Receipt Date: 20071116
  Transmission Date: 20080405
  Serious: Yes (Other)
  Sender: FDA-Public Use
  Company Number: 2007325492

PATIENT
  Age: 18 Year
  Sex: Female
  Weight: 63.05 kg

DRUGS (1)
  1. LISTERINE AGENT COOL BLUE BUBBLE BLAST (NO ACTIVE INGREDIENT) [Suspect]
     Indication: DENTAL DISORDER PROPHYLAXIS
     Dosage: AS DIRECTED MORNING AND NIGHT,ORAL
     Route: 048
     Dates: start: 20070101, end: 20070501

REACTIONS (12)
  - BACK PAIN [None]
  - BLOOD URINE PRESENT [None]
  - CHILLS [None]
  - CHROMATURIA [None]
  - COLD SWEAT [None]
  - DIZZINESS [None]
  - HYPERHIDROSIS [None]
  - MUSCLE SPASMS [None]
  - PROTEIN URINE PRESENT [None]
  - PYREXIA [None]
  - TREMOR [None]
  - URINE KETONE BODY PRESENT [None]
